FAERS Safety Report 4855571-8 (Version None)
Quarter: 2005Q4

REPORT INFORMATION
  Report Type: 
  Country: None (occurrence: None)
  Receive Date: 20051216
  Receipt Date: 20051206
  Transmission Date: 20060501
  Serious: Yes (Life-Threatening, Hospitalization)
  Sender: FDA-Public Use
  Company Number: FR-ABBOTT-05P-056-0318922-00

PATIENT
  Sex: Male

DRUGS (5)
  1. DEPAKENE [Suspect]
     Indication: EPILEPSY
     Route: 048
     Dates: start: 20040622
  2. CLOPIDOGREL BISULFATE [Interacting]
     Indication: PERIPHERAL ARTERIAL OCCLUSIVE DISEASE
     Route: 048
     Dates: start: 20030701, end: 20050123
  3. CLOPIDOGREL BISULFATE [Interacting]
     Indication: CORONARY ARTERY DISEASE
  4. FINASTERIDE [Concomitant]
     Indication: PROSTATIC ADENOMA
     Route: 048
  5. WARFARIN [Concomitant]
     Indication: DRUG USE FOR UNKNOWN INDICATION
     Dates: start: 20050123

REACTIONS (15)
  - ANAEMIA [None]
  - BLOOD PRESSURE DECREASED [None]
  - COAGULATION FACTOR XI LEVEL DECREASED [None]
  - COAGULATION FACTOR XII LEVEL DECREASED [None]
  - DRUG INEFFECTIVE [None]
  - DRUG INTERACTION [None]
  - EPISTAXIS [None]
  - HAEMATEMESIS [None]
  - HAEMATURIA [None]
  - HAEMOPTYSIS [None]
  - ISCHAEMIC STROKE [None]
  - MYOCARDIAL INFARCTION [None]
  - PLATELET AGGREGATION DECREASED [None]
  - RECTAL HAEMORRHAGE [None]
  - SHOCK HAEMORRHAGIC [None]
